FAERS Safety Report 4921332-4 (Version None)
Quarter: 2006Q1

REPORT INFORMATION
  Report Type: 
  Country: None (occurrence: None)
  Receive Date: 20060224
  Receipt Date: 20050315
  Transmission Date: 20060701
  Serious: Yes (Hospitalization, Disabling, Other)
  Sender: FDA-Public Use
  Company Number: US-JNJFOC-20040505612

PATIENT
  Sex: Female
  Weight: 93.9 kg

DRUGS (6)
  1. LEVAQUIN [Suspect]
     Route: 048
  2. LEVAQUIN [Suspect]
     Indication: URINARY TRACT INFECTION
     Route: 048
  3. EFFEXOR [Concomitant]
  4. PHENERGAN [Concomitant]
     Route: 048
  5. PROTONIX [Concomitant]
     Route: 048
  6. NYSTATIN [Concomitant]

REACTIONS (22)
  - BILIARY DYSKINESIA [None]
  - BLOOD POTASSIUM DECREASED [None]
  - BLOOD PRESSURE INCREASED [None]
  - CROHN'S DISEASE [None]
  - DEHYDRATION [None]
  - DRUG TOXICITY [None]
  - EYE INFLAMMATION [None]
  - HYPERREFLEXIA [None]
  - HYPERSENSITIVITY [None]
  - IRIDOCYCLITIS [None]
  - IRRITABLE BOWEL SYNDROME [None]
  - MACULAR OEDEMA [None]
  - MYCOPLASMA SEROLOGY [None]
  - MYDRIASIS [None]
  - NEPHRITIS ALLERGIC [None]
  - NEPHRITIS INTERSTITIAL [None]
  - OPTIC ATROPHY [None]
  - OPTIC NEURITIS [None]
  - PAPILLOEDEMA [None]
  - PUPILLARY REFLEX IMPAIRED [None]
  - RENAL FAILURE ACUTE [None]
  - SWELLING FACE [None]
